FAERS Safety Report 4845206-2 (Version None)
Quarter: 2005Q4

REPORT INFORMATION
  Report Type: 
  Country: None (occurrence: None)
  Receive Date: 20051125
  Receipt Date: 20051006
  Transmission Date: 20060501
  Serious: Yes (Other)
  Sender: FDA-Public Use
  Company Number: 2005119814

PATIENT
  Age: 36 Year
  Sex: Female
  Weight: 69 kg

DRUGS (8)
  1. ADRIAMYCIN PFS [Suspect]
     Indication: HODGKIN'S DISEASE
     Dosage: EVERY 14 DAYS, INTRAVENOUS
     Dates: start: 20041228, end: 20050503
  2. NEULASTA [Suspect]
     Indication: HODGKIN'S DISEASE
     Dosage: 6 MG, EVERY 28 DAYS
     Dates: start: 20041228, end: 20050503
  3. BLEOMYCIN SULFATE [Suspect]
     Indication: HODGKIN'S DISEASE
     Dosage: EVERY 14 DAYS
     Dates: start: 20041228, end: 20050503
  4. VINBLASTINE SULFATE [Suspect]
     Indication: HODGKIN'S DISEASE
     Dosage: 14 DAYS
     Dates: start: 20041228, end: 20050503
  5. DACARBAZINE [Suspect]
     Indication: HODGKIN'S DISEASE
     Dosage: 2 IN 1 M
     Dates: start: 20041228
  6. LORAZEPAM [Concomitant]
  7. PREDNISONE [Concomitant]
  8. DEXAMETHASONE [Concomitant]

REACTIONS (6)
  - CHEST X-RAY ABNORMAL [None]
  - COUGH [None]
  - DRUG INTERACTION [None]
  - DYSPNOEA [None]
  - PULMONARY FUNCTION TEST ABNORMAL [None]
  - PULMONARY TOXICITY [None]
